FAERS Safety Report 6819811-8 (Version None)
Quarter: 2010Q3

REPORT INFORMATION
  Report Type: 
  Country: None (occurrence: None)
  Receive Date: 20100707
  Receipt Date: 20100628
  Transmission Date: 20110219
  Serious: Yes (Death)
  Sender: FDA-Public Use
  Company Number: US-BAXTER-2010BH017260

PATIENT
  Age: 61 Year
  Sex: Female

DRUGS (4)
  1. DIANEAL [Suspect]
     Indication: PERITONEAL DIALYSIS
     Route: 033
     Dates: end: 20100627
  2. DIANEAL [Suspect]
     Route: 033
     Dates: end: 20100627
  3. DIANEAL [Suspect]
     Indication: PERITONEAL DIALYSIS
     Route: 033
     Dates: end: 20100627
  4. DIANEAL [Suspect]
     Route: 033
     Dates: end: 20100627

REACTIONS (1)
  - DEATH [None]
